FAERS Safety Report 9627131 (Version 1)
Quarter: 2013Q4

REPORT INFORMATION
  Report Type: Spontaneous
  Country: US (occurrence: US)
  Receive Date: 20131016
  Receipt Date: 20131016
  Transmission Date: 20140711
  Serious: Yes (Other)
  Sender: FDA-Public Use
  Company Number: US-BAYER-2013-125289

PATIENT
  Age: 86 Year
  Sex: Female

DRUGS (3)
  1. BAYER ASPIRIN REGIMEN ADULT LOW STRENGTH [Suspect]
     Dosage: UNK UNK, ONCE
     Route: 048
  2. PRILOSEC [Concomitant]
  3. CALCIUM VIT D [Concomitant]

REACTIONS (1)
  - Ulcer [None]
